FAERS Safety Report 5201898-X (Version None)
Quarter: 2006Q4

REPORT INFORMATION
  Report Type: 
  Country: None (occurrence: None)
  Receive Date: 20061010
  Receipt Date: 20051212
  Transmission Date: 20070319
  Serious: Yes (Other)
  Sender: FDA-Public Use
  Company Number: 2005-12-0625

PATIENT
  Sex: Male

DRUGS (1)
  1. TEMODAR [Suspect]

REACTIONS (1)
  - NEOPLASM PROGRESSION [None]
